FAERS Safety Report 12266490 (Version 1)
Quarter: 2016Q2

REPORT INFORMATION
  Report Type: Spontaneous
  Country: US (occurrence: US)
  Receive Date: 20160414
  Receipt Date: 20160414
  Transmission Date: 20160815
  Serious: Yes (Other)
  Sender: FDA-Public Use
  Company Number: US-BEH-2016061395

PATIENT
  Sex: Female
  Weight: 63 kg

DRUGS (36)
  1. MELATONIN [Concomitant]
     Active Substance: MELATONIN
  2. SINGULAIR [Concomitant]
     Active Substance: MONTELUKAST SODIUM
  3. HIZENTRA [Suspect]
     Active Substance: HUMAN IMMUNOGLOBULIN G
     Indication: IMMUNODEFICIENCY COMMON VARIABLE
     Route: 058
  4. EPIPEN [Concomitant]
     Active Substance: EPINEPHRINE
  5. CEPHALEXIN. [Concomitant]
     Active Substance: CEPHALEXIN
  6. TUSSIONEX PENNKINETIC [Concomitant]
     Active Substance: CHLORPHENIRAMINE\HYDROCODONE
  7. HIZENTRA [Suspect]
     Active Substance: HUMAN IMMUNOGLOBULIN G
     Route: 058
  8. COUGH SYRUP [Concomitant]
     Active Substance: DEXTROMETHORPHAN HYDROBROMIDE\GUAIFENESIN
  9. ZOLOFT [Concomitant]
     Active Substance: SERTRALINE HYDROCHLORIDE
  10. POTASSIUM [Concomitant]
     Active Substance: POTASSIUM
  11. DOXYCYCLINE. [Concomitant]
     Active Substance: DOXYCYCLINE
  12. VITAMIN C [Concomitant]
     Active Substance: ASCORBIC ACID
  13. AZITHROMYCIN ANHYDROUS. [Concomitant]
     Active Substance: AZITHROMYCIN ANHYDROUS
  14. VALTREX [Concomitant]
     Active Substance: VALACYCLOVIR HYDROCHLORIDE
  15. ROCEPHIN [Concomitant]
     Active Substance: CEFTRIAXONE SODIUM
  16. LYRICA [Concomitant]
     Active Substance: PREGABALIN
  17. BACLOFEN. [Concomitant]
     Active Substance: BACLOFEN
  18. TEMAZEPAM. [Concomitant]
     Active Substance: TEMAZEPAM
  19. DIPHENHYDRAMINE. [Concomitant]
     Active Substance: DIPHENHYDRAMINE
  20. ADVAIR HFA [Concomitant]
     Active Substance: FLUTICASONE PROPIONATE\SALMETEROL XINAFOATE
  21. AUGMENTIN [Concomitant]
     Active Substance: AMOXICILLIN\CLAVULANATE POTASSIUM
  22. FLUCONAZOLE. [Concomitant]
     Active Substance: FLUCONAZOLE
  23. AVELOX [Concomitant]
     Active Substance: MOXIFLOXACIN HYDROCHLORIDE
  24. PRENATAL VITAMINS [Concomitant]
     Active Substance: VITAMINS
  25. LEVAQUIN [Concomitant]
     Active Substance: LEVOFLOXACIN
  26. LIDOCAINE/PRILOCAINE [Concomitant]
  27. DILAUDID [Concomitant]
     Active Substance: HYDROMORPHONE HYDROCHLORIDE
  28. PENNKINETIC [Concomitant]
  29. ZYRTEC [Concomitant]
     Active Substance: CETIRIZINE HYDROCHLORIDE
  30. VITAMIN D3 [Concomitant]
     Active Substance: CHOLECALCIFEROL
  31. HIZENTRA [Suspect]
     Active Substance: HUMAN IMMUNOGLOBULIN G
     Route: 058
  32. NADOLOL. [Concomitant]
     Active Substance: NADOLOL
  33. IBUPROFEN. [Concomitant]
     Active Substance: IBUPROFEN
  34. FISH OIL [Concomitant]
     Active Substance: FISH OIL
  35. PROGESTERONE MICRONIZED [Concomitant]
  36. TYLENOL EXTRA STRENGTH [Concomitant]
     Active Substance: ACETAMINOPHEN

REACTIONS (2)
  - Infection susceptibility increased [Unknown]
  - Therapy change [Unknown]
